FAERS Safety Report 5343604-4 (Version None)
Quarter: 2007Q2

REPORT INFORMATION
  Report Type: 
  Country: None (occurrence: None)
  Receive Date: 20070531
  Receipt Date: 20070516
  Transmission Date: 20071010
  Serious: Yes (Hospitalization)
  Sender: FDA-Public Use
  Company Number: SPV1-2007-03017

PATIENT
  Sex: Female

DRUGS (3)
  1. PENTASA [Suspect]
     Indication: COLITIS ULCERATIVE
     Dosage: 1000 MG, 1X/DAY; QD, ORAL
     Route: 048
     Dates: start: 19980101, end: 20070501
  2. ANCORON                        (AMIODARONE HYDROCHLORIDE) [Concomitant]
  3. CORGARD [Concomitant]

REACTIONS (1)
  - BRADYCARDIA [None]
